FAERS Safety Report 7521784-X (Version None)
Quarter: 2011Q2

REPORT INFORMATION
  Report Type: 
  Country: None (occurrence: None)
  Receive Date: 20110603
  Receipt Date: 20110519
  Transmission Date: 20111010
  Serious: Yes (Hospitalization)
  Sender: FDA-Public Use
  Company Number: CA-JNJFOC-20110502019

PATIENT
  Sex: Female
  Weight: 82 kg

DRUGS (22)
  1. CLONAZEPAM [Concomitant]
  2. REMICADE [Suspect]
     Indication: CROHN'S DISEASE
     Route: 042
     Dates: start: 20050113
  3. CODEINE SULFATE [Concomitant]
  4. VITAMIN B-12 [Concomitant]
  5. CALCIUM CARBONATE [Concomitant]
  6. IMOVANE [Concomitant]
  7. FOLIC ACID [Concomitant]
  8. METHOTREXATE [Concomitant]
  9. TEMAZEPAM [Concomitant]
  10. IRON SUPPLEMENT [Concomitant]
  11. PRISTIQ [Concomitant]
  12. ACETAMINOPHEN AND CODEINE PHOSPHATE [Concomitant]
  13. MESALAMINE [Concomitant]
  14. MULTI-VITAMINS [Concomitant]
  15. TYLENOL-500 [Concomitant]
  16. ESCITALOPRAM [Concomitant]
  17. CLONAZEPAM [Concomitant]
  18. PANTOPRAZOLE SODIUM [Concomitant]
  19. TOPIRAMATE [Concomitant]
  20. GRAVOL TAB [Concomitant]
  21. CYTOMEL [Concomitant]
  22. BENADRYL [Concomitant]

REACTIONS (1)
  - DEPRESSION [None]
